FAERS Safety Report 21449204 (Version 1)
Quarter: 2022Q4

REPORT INFORMATION
  Report Type: Report from Study
  Country: US (occurrence: US)
  Receive Date: 20221013
  Receipt Date: 20221013
  Transmission Date: 20230112
  Serious: No
  Sender: FDA-Public Use
  Company Number: US-ABBVIE-4141690

PATIENT
  Sex: Female

DRUGS (2)
  1. SYNTHROID [Suspect]
     Active Substance: LEVOTHYROXINE SODIUM
     Indication: Hypothyroidism
     Dosage: 75 MICROGRAM
     Route: 048
     Dates: start: 2020, end: 202209
  2. SYNTHROID [Suspect]
     Active Substance: LEVOTHYROXINE SODIUM
     Indication: Hypothyroidism
     Dosage: 50 MILLIGRAM
     Route: 048
     Dates: start: 20220922

REACTIONS (1)
  - Maternal exposure during pregnancy [Unknown]
